FAERS Safety Report 12696859 (Version 2)
Quarter: 2017Q3

REPORT INFORMATION
  Report Type: Spontaneous
  Country: US (occurrence: US)
  Receive Date: 20160830
  Receipt Date: 20170821
  Transmission Date: 20171127
  Serious: No
  Sender: FDA-Public Use
  Company Number: US-TEVA-669138USA

PATIENT
  Sex: Male
  Weight: 86.26 kg

DRUGS (1)
  1. FAMCICLOVIR. [Suspect]
     Active Substance: FAMCICLOVIR
     Indication: ORAL HERPES
     Route: 065

REACTIONS (3)
  - Rash erythematous [Recovering/Resolving]
  - Urticaria [Unknown]
  - Pruritus [Unknown]
